FAERS Safety Report 9652462 (Version 1)
Quarter: 2013Q4

REPORT INFORMATION
  Report Type: Spontaneous
  Country: US (occurrence: US)
  Receive Date: 20131029
  Receipt Date: 20131029
  Transmission Date: 20140711
  Serious: Yes (Hospitalization)
  Sender: FDA-Public Use
  Company Number: US-PFIZER INC-2013306605

PATIENT
  Age: 70 Year
  Sex: Female
  Weight: 74.83 kg

DRUGS (15)
  1. ADVIL GELCAPS [Suspect]
     Indication: BACK PAIN
     Dosage: 200 MG, 2X/DAY
     Route: 048
     Dates: end: 201310
  2. NORVASC [Suspect]
     Indication: HYPERTENSION
     Dosage: 10 MG, 2X/DAY
     Dates: end: 201310
  3. LASIX [Suspect]
     Indication: HYPERTENSION
     Dosage: 10 MG, UNK
     Dates: end: 201310
  4. CITRACAL + D [Concomitant]
     Dosage: UNK, 1X/DAY
  5. BIOTIN [Concomitant]
     Dosage: UNK, 1X/DAY
  6. UREX [Concomitant]
     Dosage: 1 G, 2X/DAY
  7. OMEPRAZOLE [Concomitant]
     Dosage: 40 MG, 2X/DAY
  8. POTASSIUM CHLORIDE [Concomitant]
     Dosage: 20 UG, 2X/DAY
  9. SINGULAIR [Concomitant]
     Dosage: UNK, 1X/DAY
  10. SPIRIVA [Concomitant]
     Dosage: UNK, 1X/DAY
  11. MAG-OX [Concomitant]
     Dosage: UNK, 1X/DAY
  12. AMITRIPTYLINE [Concomitant]
     Dosage: 50 MG, UNK
  13. GRALISE [Concomitant]
     Dosage: UNK, 1X/DAY
  14. VITAMIN B12 [Concomitant]
     Dosage: UNK, MONTHLY
     Route: 030
  15. VITAMIN B12 [Concomitant]
     Dosage: UNK
     Route: 048

REACTIONS (14)
  - Overdose [Unknown]
  - Hypersomnia [Unknown]
  - Nasopharyngitis [Recovering/Resolving]
  - Memory impairment [Recovering/Resolving]
  - Limb discomfort [Recovering/Resolving]
  - Swelling [Recovering/Resolving]
  - Tongue disorder [Recovering/Resolving]
  - Musculoskeletal discomfort [Recovering/Resolving]
  - Dyspnoea [Recovering/Resolving]
  - Blood potassium decreased [Unknown]
  - Hypotension [Unknown]
  - Tremor [Recovering/Resolving]
  - Asthenia [Recovering/Resolving]
  - Activities of daily living impaired [Recovering/Resolving]
